FAERS Safety Report 4462510-0 (Version None)
Quarter: 2004Q3

REPORT INFORMATION
  Report Type: 
  Country: None (occurrence: None)
  Receive Date: 20040928
  Receipt Date: 20040910
  Transmission Date: 20050211
  Serious: Yes (Hospitalization, Other)
  Sender: FDA-Public Use
  Company Number: 2004065277

PATIENT
  Age: 73 Year
  Sex: Male

DRUGS (2)
  1. NEURONTIN [Suspect]
     Indication: HERPES ZOSTER
     Dosage: ORAL
     Route: 048
     Dates: start: 20020101, end: 20040110
  2. NEURONTIN [Suspect]
     Indication: PAIN
     Dosage: ORAL
     Route: 048
     Dates: start: 20020101, end: 20040110

REACTIONS (7)
  - CHOLESTASIS [None]
  - CHRONIC HEPATITIS [None]
  - HEPATIC STEATOSIS [None]
  - HEPATOMEGALY [None]
  - INTRA-ABDOMINAL HAEMANGIOMA [None]
  - MYALGIA [None]
  - PYREXIA [None]
